FAERS Safety Report 6078582-6 (Version None)
Quarter: 2009Q1

REPORT INFORMATION
  Report Type: 
  Country: None (occurrence: None)
  Receive Date: 20090212
  Receipt Date: 20090205
  Transmission Date: 20090719
  Serious: Yes (Hospitalization)
  Sender: FDA-Public Use
  Company Number: 2009JP000627

PATIENT
  Age: 36 Year
  Sex: Male

DRUGS (10)
  1. PROTOPIC [Suspect]
     Indication: DERMATITIS ATOPIC
     Dosage: 0.1% TOPICAL
     Route: 061
     Dates: end: 20081212
  2. TACROLIMUS(TACROLUMUS) EYE DROP [Suspect]
     Indication: CONJUNCTIVITIS ALLERGIC
     Dosage: 1 DROPS, BID, OPHTHALMIC
     Route: 047
     Dates: start: 20081018, end: 20081212
  3. PAPILOCK MINI EYE DROP [Concomitant]
  4. RINDERON (BETAMETHASONE) EYE DROP [Concomitant]
  5. FLUMETHOLON (FLUOROMETHOLONE) EYE DROP [Concomitant]
  6. INTAL EYE DROP [Concomitant]
  7. HYALEIN MINI (HYALURONIC ACID) EYE DROP [Concomitant]
  8. ADEKOK (OXATOMIDE) TABLET [Concomitant]
  9. WHITE PETROLEUM (PETROLATUM) OINTMENT [Concomitant]
  10. GABALON (TABLET) [Concomitant]

REACTIONS (4)
  - ABNORMAL SENSATION IN EYE [None]
  - CELLULITIS [None]
  - FALL [None]
  - LIMB INJURY [None]
